FAERS Safety Report 25780959 (Version 1)
Quarter: 2025Q3

REPORT INFORMATION
  Report Type: Report from Study
  Country: US (occurrence: US)
  Receive Date: 20250909
  Receipt Date: 20250909
  Transmission Date: 20251021
  Serious: Yes (Other)
  Sender: OTSUKA
  Company Number: US-MMM-Otsuka-87Z1W9GI

PATIENT
  Age: 76 Year
  Sex: Female

DRUGS (1)
  1. DEXTROMETHORPHAN HYDROBROMIDE\QUINIDINE SULFATE [Suspect]
     Active Substance: DEXTROMETHORPHAN HYDROBROMIDE\QUINIDINE SULFATE
     Indication: Affect lability
     Dosage: 1 DF (20MG/10MG), BID (EVERY 12 HOURS)
     Route: 065
     Dates: start: 202507

REACTIONS (3)
  - Femur fracture [Unknown]
  - Wheelchair user [Unknown]
  - Surgery [Unknown]

NARRATIVE: CASE EVENT DATE: 20250731
